FAERS Safety Report 4559503-1 (Version None)
Quarter: 2005Q1

REPORT INFORMATION
  Report Type: 
  Country: None (occurrence: None)
  Receive Date: 20050119
  Receipt Date: 20050107
  Transmission Date: 20050727
  Serious: Yes (Death, Life-Threatening, Hospitalization)
  Sender: FDA-Public Use
  Company Number: 034-0981-990119

PATIENT
  Age: 45 Year
  Sex: Male
  Weight: 79 kg

DRUGS (7)
  1. ATORVASTATIN(ATORVASTATIN) [Suspect]
     Indication: HYPERCHOLESTEROLAEMIA
     Dosage: SEE IMAGE
     Route: 048
     Dates: start: 19981002, end: 19981210
  2. ATORVASTATIN(ATORVASTATIN) [Suspect]
     Indication: PROPHYLAXIS
     Dosage: SEE IMAGE
     Route: 048
     Dates: start: 19981002, end: 19981210
  3. ATORVASTATIN(ATORVASTATIN) [Suspect]
     Indication: HYPERCHOLESTEROLAEMIA
     Dosage: SEE IMAGE
     Route: 048
     Dates: start: 19981210, end: 19990808
  4. ATORVASTATIN(ATORVASTATIN) [Suspect]
     Indication: PROPHYLAXIS
     Dosage: SEE IMAGE
     Route: 048
     Dates: start: 19981210, end: 19990808
  5. ASPIRIN [Concomitant]
  6. BISOPROLOL FUMARATE [Concomitant]
  7. GEMFIBROZIL [Concomitant]

REACTIONS (7)
  - ANGINA PECTORIS [None]
  - BRONCHOPNEUMONIA [None]
  - CHEST PAIN [None]
  - COLITIS ULCERATIVE [None]
  - DYSPNOEA [None]
  - MEGACOLON [None]
  - SEPSIS [None]
